FAERS Safety Report 7688280-0 (Version None)
Quarter: 2011Q3

REPORT INFORMATION
  Report Type: 
  Country: None (occurrence: None)
  Receive Date: 20110817
  Receipt Date: 20110414
  Transmission Date: 20111222
  Serious: No
  Sender: FDA-Public Use
  Company Number: US-KINGPHARMUSA00001-K201100472

PATIENT
  Age: 42 Year
  Sex: Female

DRUGS (3)
  1. CYTOMEL [Suspect]
     Dosage: 50-75 MCG, QD
     Route: 048
     Dates: start: 20100901, end: 20110201
  2. HYDROCORTISONE [Concomitant]
  3. CYTOMEL [Suspect]
     Dosage: 75-100 MCG, QD
     Route: 048
     Dates: start: 20110201

REACTIONS (2)
  - DRUG INEFFECTIVE [None]
  - SLUGGISHNESS [None]
